FAERS Safety Report 7897510 (Version 2)
Quarter: 2013Q1

REPORT INFORMATION
  Report Type: Spontaneous
  Country: CA (occurrence: CA)
  Receive Date: 20110413
  Receipt Date: 20130214
  Transmission Date: 20140127
  Serious: Yes (Other)
  Sender: FDA-Public Use
  Company Number: PHHY2011CA27486

PATIENT
  Sex: Female

DRUGS (2)
  1. SANDOSTATIN LAR [Suspect]
     Indication: NEUROENDOCRINE TUMOUR
     Dosage: 30 MG, QMO
     Route: 030
     Dates: start: 20100621
  2. BABY ASPIRIN [Concomitant]

REACTIONS (4)
  - Injection site haemorrhage [Recovered/Resolved]
  - Injection site mass [Unknown]
  - Anorectal discomfort [Unknown]
  - Diarrhoea [Unknown]
